FAERS Safety Report 18175576 (Version 1)
Quarter: 2020Q3

REPORT INFORMATION
  Report Type: Spontaneous
  Country: JP (occurrence: JP)
  Receive Date: 20200820
  Receipt Date: 20200820
  Transmission Date: 20201103
  Serious: Yes (Hospitalization, Other)
  Sender: FDA-Public Use
  Company Number: JP-PFIZER INC-2020315625

PATIENT

DRUGS (3)
  1. RHEUMATREX [Suspect]
     Active Substance: METHOTREXATE SODIUM
     Indication: RHEUMATOID ARTHRITIS
     Dosage: UNK
  2. CEFMETAZOLE [Suspect]
     Active Substance: CEFMETAZOLE
     Dosage: UNK
     Route: 041
     Dates: end: 202008
  3. FLOMOX [CEFCAPENE PIVOXIL HYDROCHLORIDE] [Suspect]
     Active Substance: CEFCAPENE PIVOXIL HYDROCHLORIDE
     Dosage: UNK
     Route: 048
     Dates: end: 202008

REACTIONS (5)
  - Neutrophil count decreased [Unknown]
  - Urosepsis [Unknown]
  - Urinary tract infection [Unknown]
  - Full blood count decreased [Unknown]
  - Drug interaction [Unknown]
